FAERS Safety Report 8198622-8 (Version None)
Quarter: 2012Q1

REPORT INFORMATION
  Report Type: 
  Country: None (occurrence: None)
  Receive Date: 20120309
  Receipt Date: 20111214
  Transmission Date: 20120608
  Serious: No
  Sender: FDA-Public Use
  Company Number: US-AMGEN-USASP2011051462

PATIENT
  Sex: Female

DRUGS (1)
  1. PROLIA [Suspect]
     Indication: OSTEOPOROSIS POSTMENOPAUSAL
     Dosage: 60 MG, Q6MO
     Dates: start: 20110527, end: 20110920

REACTIONS (6)
  - HEADACHE [None]
  - BONE PAIN [None]
  - BACK PAIN [None]
  - MYALGIA [None]
  - ARTHRALGIA [None]
  - URINARY TRACT INFECTION [None]
